FAERS Safety Report 15189453 (Version 2)
Quarter: 2018Q3

REPORT INFORMATION
  Report Type: Report from Study
  Country: US (occurrence: US)
  Receive Date: 20180724
  Receipt Date: 20180803
  Transmission Date: 20181010
  Serious: Yes (Hospitalization, Other)
  Sender: FDA-Public Use
  Company Number: US-SHIRE-US201827441

PATIENT
  Sex: Female
  Weight: 76.19 kg

DRUGS (1)
  1. NATPARA (PARATHYROID HORMONE) [Suspect]
     Active Substance: PARATHYROID HORMONE
     Indication: HYPOPARATHYROIDISM
     Dosage: 25 ?G, 1X/DAY:QD
     Route: 065

REACTIONS (8)
  - Loss of consciousness [Unknown]
  - Hospitalisation [Unknown]
  - Adverse event [Unknown]
  - Muscle spasms [Unknown]
  - Blood calcium abnormal [Unknown]
  - Malaise [Unknown]
  - Photopsia [Unknown]
  - Paraesthesia [Unknown]
